FAERS Safety Report 4361352-4 (Version None)
Quarter: 2004Q2

REPORT INFORMATION
  Report Type: 
  Country: None (occurrence: None)
  Receive Date: 20040521
  Receipt Date: 20040312
  Transmission Date: 20050107
  Serious: Yes (Other)
  Sender: FDA-Public Use
  Company Number: PHNU2004DE01206

PATIENT
  Age: 75 Year
  Sex: Male
  Weight: 86 kg

DRUGS (3)
  1. SANDIMMUNE [Suspect]
     Indication: HEART TRANSPLANT
     Dosage: 225 MG DAILY
     Route: 048
     Dates: start: 19930101
  2. ASPIRIN [Concomitant]
  3. MAGNESIUM [Concomitant]

REACTIONS (6)
  - BONE DISORDER [None]
  - BONE PAIN [None]
  - NEPHROPATHY TOXIC [None]
  - NEPHROSCLEROSIS [None]
  - NOCTURIA [None]
  - RENAL FAILURE [None]
